FAERS Safety Report 22539752 (Version 1)
Quarter: 2023Q2

REPORT INFORMATION
  Report Type: Spontaneous
  Country: IT (occurrence: None)
  Receive Date: 20230609
  Receipt Date: 20230609
  Transmission Date: 20230722
  Serious: Yes (Other)
  Sender: FDA-Public Use
  Company Number: 2023A129913

PATIENT
  Sex: Male
  Weight: 70 kg

DRUGS (1)
  1. DAPAGLIFLOZIN [Suspect]
     Active Substance: DAPAGLIFLOZIN
     Indication: Ill-defined disorder
     Dosage: 10.0MG ONCE/SINGLE ADMINISTRATION
     Route: 048

REACTIONS (2)
  - Pruritus [Unknown]
  - Balanoposthitis [Unknown]
